FAERS Safety Report 7404706-1 (Version None)
Quarter: 2011Q2

REPORT INFORMATION
  Report Type: 
  Country: None (occurrence: None)
  Receive Date: 20110411
  Receipt Date: 20110401
  Transmission Date: 20111010
  Serious: No
  Sender: FDA-Public Use
  Company Number: US-BIOGENIDEC-2011BI012558

PATIENT
  Age: 41 Year
  Sex: Female

DRUGS (2)
  1. TYSABRI [Suspect]
     Route: 042
     Dates: start: 20091023, end: 20100127
  2. TYSABRI [Suspect]
     Indication: MULTIPLE SCLEROSIS
     Route: 042
     Dates: start: 20101029

REACTIONS (4)
  - TOOTH FRACTURE [None]
  - PHARYNGITIS STREPTOCOCCAL [None]
  - GENITAL HYPOAESTHESIA [None]
  - GAIT DISTURBANCE [None]
